FAERS Safety Report 4392316-2 (Version None)
Quarter: 2004Q3

REPORT INFORMATION
  Report Type: 
  Country: None (occurrence: None)
  Receive Date: 20040702
  Receipt Date: 20040621
  Transmission Date: 20050211
  Serious: Yes (Hospitalization)
  Sender: FDA-Public Use
  Company Number: US-JNJFOC-20040404851

PATIENT
  Age: 76 Year
  Sex: Female
  Weight: 56 kg

DRUGS (12)
  1. DURAGESIC [Suspect]
     Indication: PAIN
     Dosage: 75 UG/KG, 1 IN 72 HOUR, TRANSDERMAL
     Route: 062
     Dates: start: 20030923
  2. CARDIZEM [Concomitant]
  3. NEURONTIN [Concomitant]
  4. LEXAPRO [Concomitant]
  5. ELAVIL [Concomitant]
  6. LASIX [Concomitant]
  7. SPIRONOLACTONE [Concomitant]
  8. WELLBUTRIN [Concomitant]
  9. HYDROCODONE BITARTRATE [Concomitant]
  10. ADVAIR (SERETIDE MITE) [Concomitant]
  11. PROTONIX [Concomitant]
  12. DIGOXIN [Concomitant]

REACTIONS (4)
  - FOREIGN BODY TRAUMA [None]
  - ILEUS [None]
  - OESOPHAGEAL PERFORATION [None]
  - ULCER [None]
